FAERS Safety Report 6216468-4 (Version None)
Quarter: 2009Q2

REPORT INFORMATION
  Report Type: 
  Country: None (occurrence: None)
  Receive Date: 20090605
  Receipt Date: 20090527
  Transmission Date: 20091009
  Serious: Yes (Other)
  Sender: FDA-Public Use
  Company Number: AR-AVENTIS-200912899EU

PATIENT
  Age: 39 Year
  Sex: Female

DRUGS (2)
  1. ENOXAPARIN SODIUM [Suspect]
     Dosage: DOSE: UNK
  2. UNKNOWN DRUG [Concomitant]
     Indication: ROSACEA
     Route: 061

REACTIONS (4)
  - ABORTION SPONTANEOUS [None]
  - DERMATITIS ALLERGIC [None]
  - DRUG EXPOSURE DURING PREGNANCY [None]
  - INJECTION SITE REACTION [None]
